FAERS Safety Report 22101495 (Version 1)
Quarter: 2023Q1

REPORT INFORMATION
  Report Type: Spontaneous
  Country: GB (occurrence: GB)
  Receive Date: 20230316
  Receipt Date: 20230316
  Transmission Date: 20230418
  Serious: Yes (Other)
  Sender: FDA-Public Use
  Company Number: GB-MHRA-MED-202303081633554470-JTYSG

PATIENT
  Age: 40 Year
  Sex: Female

DRUGS (4)
  1. FRAGMIN [Suspect]
     Active Substance: DALTEPARIN SODIUM
     Dosage: 5000 IU
     Dates: start: 20230307, end: 20230308
  2. ESTROGENS [Concomitant]
     Active Substance: ESTROGENS
     Indication: Assisted fertilisation
     Dosage: UNK
     Dates: start: 20230214
  3. FOLIC ACID [Concomitant]
     Active Substance: FOLIC ACID
     Indication: Vitamin supplementation
     Dosage: 400 UG
  4. PROGESTERONE [Concomitant]
     Active Substance: PROGESTERONE
     Indication: Assisted fertilisation
     Dosage: UNK
     Dates: start: 20230302

REACTIONS (4)
  - Maternal exposure before pregnancy [Unknown]
  - Lip blister [Not Recovered/Not Resolved]
  - Lip swelling [Unknown]
  - Flushing [Unknown]

NARRATIVE: CASE EVENT DATE: 20230308
